FAERS Safety Report 4304535-1 (Version None)
Quarter: 2004Q1

REPORT INFORMATION
  Report Type: 
  Country: None (occurrence: None)
  Receive Date: 20040224
  Receipt Date: 20040217
  Transmission Date: 20041129
  Serious: Yes (Life-Threatening)
  Sender: FDA-Public Use
  Company Number: NL-JNJFOC-20040203508

PATIENT
  Age: 52 Year
  Sex: Female

DRUGS (4)
  1. REMICADE [Suspect]
     Indication: CROHN'S DISEASE
     Dosage: 5 MG/KG, INTRAVENOUS
     Route: 042
     Dates: start: 20030415, end: 20031016
  2. AZATHIOPRINE (TABLETS) AZATHIOPRINE [Concomitant]
  3. SALOFALK (TABLETS) AMINOSALICYLIC ACID [Concomitant]
  4. EFEXOR (VENLAFAXINE HYDROCHLORIDE) TABLETS [Concomitant]

REACTIONS (3)
  - DISSEMINATED TUBERCULOSIS [None]
  - PULMONARY TUBERCULOSIS [None]
  - TUBERCULOSIS OF CENTRAL NERVOUS SYSTEM [None]
